FAERS Safety Report 7319050-0 (Version None)
Quarter: 2011Q1

REPORT INFORMATION
  Report Type: 
  Country: None (occurrence: None)
  Receive Date: 20110228
  Receipt Date: 20100712
  Transmission Date: 20110831
  Serious: Yes (Hospitalization)
  Sender: FDA-Public Use
  Company Number: US-BAYER-201013958NA

PATIENT
  Sex: Female
  Weight: 40.363 kg

DRUGS (12)
  1. YAZ [Suspect]
     Indication: PRODUCT USED FOR UNKNOWN INDICATION
     Route: 048
  2. SYNTHROID [Concomitant]
     Indication: SUPPLEMENTATION THERAPY
     Dosage: DAILY DOSE .125 MG
     Dates: start: 20081101
  3. TRAZODONE [Concomitant]
  4. MUCINEX [Concomitant]
  5. ADVIL [Concomitant]
     Dosage: UNK
     Dates: start: 20060601
  6. HYDROCODONE BITARTRATE [Concomitant]
  7. TOPAMAX [Concomitant]
     Indication: MIGRAINE
     Dosage: 25 MG, BID
     Route: 048
  8. NAPROXEN [Concomitant]
  9. TRAMADOL [Concomitant]
     Dosage: 50 MG, UNK
  10. YASMIN [Suspect]
     Indication: CONTRACEPTION
     Dosage: UNK
     Route: 048
     Dates: start: 20071001, end: 20080601
  11. IBUPROFEN [Concomitant]
  12. ZANTAC [Concomitant]
     Dosage: 150 MG, BID

REACTIONS (5)
  - ABDOMINAL PAIN UPPER [None]
  - CHOLELITHIASIS [None]
  - NAUSEA [None]
  - CHOLECYSTITIS ACUTE [None]
  - MURPHY'S SIGN POSITIVE [None]
